FAERS Safety Report 16434274 (Version 1)
Quarter: 2019Q2

REPORT INFORMATION
  Report Type: Spontaneous
  Country: US (occurrence: US)
  Receive Date: 20190614
  Receipt Date: 20190614
  Transmission Date: 20190711
  Serious: No
  Sender: FDA-Public Use
  Company Number: US-SHIRE-US201919250

PATIENT
  Sex: Female

DRUGS (1)
  1. MOTEGRITY [Suspect]
     Active Substance: PRUCALOPRIDE SUCCINATE
     Indication: GASTROOESOPHAGEAL REFLUX DISEASE
     Dosage: 2 MILLIGRAM, 1X/DAY:QD
     Route: 048

REACTIONS (11)
  - Headache [Not Recovered/Not Resolved]
  - Nausea [Unknown]
  - Vomiting [Unknown]
  - Abdominal distension [Unknown]
  - Fatigue [Unknown]
  - Faeces discoloured [Unknown]
  - Dizziness [Unknown]
  - Abdominal discomfort [Not Recovered/Not Resolved]
  - Flatulence [Not Recovered/Not Resolved]
  - Abdominal pain [Not Recovered/Not Resolved]
  - Diarrhoea [Unknown]
